FAERS Safety Report 18532479 (Version 2)
Quarter: 2020Q4

REPORT INFORMATION
  Report Type: Spontaneous
  Country: FR (occurrence: FR)
  Receive Date: 20201123
  Receipt Date: 20201210
  Transmission Date: 20210114
  Serious: Yes (Hospitalization)
  Sender: FDA-Public Use
  Company Number: FR-TEVA-2020-FR-1850648

PATIENT
  Age: 50 Year
  Sex: Female

DRUGS (3)
  1. ROCEPHINE [Suspect]
     Active Substance: CEFTRIAXONE SODIUM
     Indication: SALPINGITIS
     Route: 048
     Dates: start: 20200829, end: 20201005
  2. FLAGYL [Suspect]
     Active Substance: METRONIDAZOLE\METRONIDAZOLE HYDROCHLORIDE
     Indication: SALPINGITIS
     Route: 048
     Dates: start: 20200829, end: 20201005
  3. CHLORHYDRATE DE DOXYCYCLINE [Suspect]
     Active Substance: DOXYCYCLINE HYDROCHLORIDE
     Indication: SALPINGITIS
     Route: 048
     Dates: start: 20200829, end: 20201005

REACTIONS (2)
  - Rash pruritic [Recovered/Resolved]
  - Lymphadenitis [Recovered/Resolved]

NARRATIVE: CASE EVENT DATE: 20201005
